FAERS Safety Report 12484435 (Version 2)
Quarter: 2016Q2

REPORT INFORMATION
  Report Type: Report from Study
  Country: JP (occurrence: JP)
  Receive Date: 20160621
  Receipt Date: 20160627
  Transmission Date: 20160815
  Serious: Yes (Life-Threatening, Other)
  Sender: FDA-Public Use
  Company Number: JP-PFIZER INC-2016307092

PATIENT
  Age: 27 Year
  Sex: Male
  Weight: 66 kg

DRUGS (12)
  1. PHENYTOIN. [Concomitant]
     Active Substance: PHENYTOIN
     Dosage: UNK
  2. LANSOPRAZOLE. [Concomitant]
     Active Substance: LANSOPRAZOLE
     Dosage: 15 MG, DAILY
  3. LEVOCARNITINE. [Suspect]
     Active Substance: LEVOCARNITINE
     Indication: CARNITINE DEFICIENCY
     Dosage: 1000 MG, DAILY
     Dates: start: 20141204
  4. E KEPPRA [Concomitant]
     Active Substance: LEVETIRACETAM
     Dosage: UNK
  5. MYSTAN [Concomitant]
     Active Substance: CLOBAZAM
     Dosage: UNK
  6. SERENACE [Suspect]
     Active Substance: HALOPERIDOL
     Indication: DYSKINESIA
     Dosage: 2.25 MG, UNK
     Dates: start: 20150307, end: 20150311
  7. EPIRENAT [Concomitant]
     Active Substance: VALPROATE SODIUM
     Dosage: UNK
  8. POLAPREZINC [Concomitant]
     Active Substance: POLAPREZINC
     Dosage: UNK
  9. URSODEOXYCHOLIC ACID [Concomitant]
     Active Substance: URSODIOL
     Dosage: UNK
  10. ZOSYN [Suspect]
     Active Substance: PIPERACILLIN SODIUM\TAZOBACTAM SODIUM
     Dosage: UNK
     Route: 042
     Dates: start: 20141204
  11. PIRACETAM [Concomitant]
     Active Substance: PIRACETAM
     Dosage: UNK
  12. CARBOCISTEINE [Concomitant]
     Active Substance: CARBOCYSTEINE
     Dosage: UNK

REACTIONS (8)
  - Pneumonia aspiration [Recovered/Resolved]
  - Pneumonia aspiration [Recovered/Resolved]
  - Blood creatine phosphokinase increased [Recovering/Resolving]
  - Dyskinesia [Recovering/Resolving]
  - Pneumonia aspiration [Recovered/Resolved]
  - Pneumonia aspiration [Recovering/Resolving]
  - Neuroleptic malignant syndrome [Recovered/Resolved]
  - Depressed level of consciousness [Not Recovered/Not Resolved]

NARRATIVE: CASE EVENT DATE: 20150304
